FAERS Safety Report 21801143 (Version 1)
Quarter: 2022Q4

REPORT INFORMATION
  Report Type: Report from Study
  Country: US (occurrence: US)
  Receive Date: 20221230
  Receipt Date: 20221230
  Transmission Date: 20230112
  Serious: No
  Sender: FDA-Public Use
  Company Number: US-ACORDA-ACO_171328_2022

PATIENT
  Sex: Male

DRUGS (5)
  1. INBRIJA [Suspect]
     Active Substance: LEVODOPA
     Indication: Parkinson^s disease
     Dosage: 2 DOSAGE FORM, PRN (NOT TO EXCEED 5 TIMES A DAY)
     Dates: start: 202107
  2. INBRIJA [Suspect]
     Active Substance: LEVODOPA
     Indication: On and off phenomenon
  3. GOCOVRI [Concomitant]
     Active Substance: AMANTADINE
     Indication: Product used for unknown indication
     Dosage: 2 CAPSULES AT NIGHT
     Route: 065
  4. RYTARY [Concomitant]
     Active Substance: CARBIDOPA\LEVODOPA
     Indication: Product used for unknown indication
     Dosage: 61.25/245 MG; 2 PILLS 4 TIMES A DAY
     Route: 065
  5. ENTACAPONE [Concomitant]
     Active Substance: ENTACAPONE
     Indication: Product used for unknown indication
     Dosage: 1 PILL 4 TIMES A DAY
     Route: 065

REACTIONS (13)
  - Altered state of consciousness [Not Recovered/Not Resolved]
  - Urinary tract infection [Recovered/Resolved]
  - Incoherent [Recovered/Resolved]
  - Parkinson^s disease [Not Recovered/Not Resolved]
  - Device use issue [Unknown]
  - Urinary tract infection [Recovered/Resolved]
  - Product residue present [Unknown]
  - Thinking abnormal [Recovered/Resolved]
  - Dyskinesia [Recovered/Resolved]
  - Fall [Not Recovered/Not Resolved]
  - Drug ineffective for unapproved indication [Unknown]
  - Dyskinesia [Recovered/Resolved]
  - Off label use [Unknown]
